FAERS Safety Report 5785972-5 (Version None)
Quarter: 2008Q2

REPORT INFORMATION
  Report Type: 
  Country: None (occurrence: None)
  Receive Date: 20080624
  Receipt Date: 20080617
  Transmission Date: 20081010
  Serious: Yes (Other)
  Sender: FDA-Public Use
  Company Number: PHEH2008US00942

PATIENT
  Sex: Female
  Weight: 75.283 kg

DRUGS (3)
  1. ZOMETA [Suspect]
     Dosage: 4 MG, QMO
     Dates: start: 20061127
  2. TAXOL [Concomitant]
  3. AVASTIN [Concomitant]

REACTIONS (7)
  - BONE DISORDER [None]
  - BONE LESION [None]
  - GINGIVAL ULCERATION [None]
  - ORAL PAIN [None]
  - OSTEOLYSIS [None]
  - OSTEONECROSIS [None]
  - PAIN IN JAW [None]
